FAERS Safety Report 14239691 (Version 2)
Quarter: 2018Q2

REPORT INFORMATION
  Report Type: Spontaneous
  Country: US (occurrence: US)
  Receive Date: 20171130
  Receipt Date: 20180530
  Transmission Date: 20180711
  Serious: Yes (Other)
  Sender: FDA-Public Use
  Company Number: US-GLAXOSMITHKLINE-US2017178651

PATIENT
  Sex: Female
  Weight: 58.96 kg

DRUGS (7)
  1. TOPAMAX [Concomitant]
     Active Substance: TOPIRAMATE
     Indication: SEIZURE
     Dosage: 150 MG, QD
  2. VITAMIN B6 [Concomitant]
     Active Substance: PYRIDOXINE HYDROCHLORIDE
  3. MAGNESIUM [Concomitant]
     Active Substance: MAGNESIUM
  4. IMITREX [Suspect]
     Active Substance: SUMATRIPTAN SUCCINATE
     Indication: MIGRAINE
     Dosage: 50 MG, PRN
     Route: 048
     Dates: start: 1998
  5. IMITREX [Suspect]
     Active Substance: SUMATRIPTAN SUCCINATE
     Dosage: 100 MG, PRN
     Route: 048
  6. SUMATRIPTAN (SUMATRIPTAN SUCCINATE) [Suspect]
     Active Substance: SUMATRIPTAN SUCCINATE
     Dosage: 6 MG, UNK
  7. SUMATRIPTAN (SUMATRIPTAN SUCCINATE) [Suspect]
     Active Substance: SUMATRIPTAN SUCCINATE
     Indication: MIGRAINE
     Dosage: 4 MG, UNK
     Dates: start: 2016

REACTIONS (11)
  - Adverse event [Unknown]
  - Prescription drug used without a prescription [Unknown]
  - Product quality issue [Unknown]
  - Dysarthria [Unknown]
  - Drug ineffective [Unknown]
  - Hemiparesis [Unknown]
  - Discomfort [Unknown]
  - Vomiting [Recovered/Resolved]
  - Wrong patient received medication [Unknown]
  - Seizure [Unknown]
  - Gait disturbance [Unknown]
